FAERS Safety Report 6769288-6 (Version None)
Quarter: 2010Q2

REPORT INFORMATION
  Report Type: 
  Country: None (occurrence: None)
  Receive Date: 20100607
  Receipt Date: 20100525
  Transmission Date: 20101027
  Serious: Yes (Other)
  Sender: FDA-Public Use
  Company Number: B0658579A

PATIENT
  Age: 50 Year
  Sex: Female
  Weight: 43.9082 kg

DRUGS (15)
  1. REMIFENTANIL HCL          (GENERIC) (REMIFENTANIL HCL) [Suspect]
     Indication: ANAESTHESIA
  2. THIOPENTONE SODIUM INJECTION (THEIPENTAL SODIUM) [Suspect]
     Indication: ANAESTHESIA
     Dosage: INTRAVENOUS
     Route: 042
  3. ROCURONIUM BROMIDE (FORMULATION UNKNOWN) (ROCURONIUM BROMIDE) [Suspect]
     Indication: ANAESTHESIA
  4. SEVOFLURANE [Concomitant]
  5. FENTANYL [Suspect]
     Indication: ANAESTHESIA
     Dosage: INTRAVENOUS
     Route: 042
  6. MEDICAL AIR (FORMULATION UNKNOWN) (MEDICAL AIR) [Suspect]
     Indication: ANAESTHESIA
  7. TRAMADOL HYDROCHLORIDE (FORMULATION UNKNOWN) [Suspect]
  8. ZOFRAN [Suspect]
  9. CARBON DIOXIDE [Concomitant]
  10. INTRAVENOUS FLUIDS [Concomitant]
  11. PYRIDOSTIGMINE BROMIDE [Concomitant]
  12. GLYCOPYRROLATE INJECTION, USP [Concomitant]
  13. OXYGEN [Concomitant]
  14. SODIUM CHLORIDE [Concomitant]
  15. ANALGESIC [Concomitant]

REACTIONS (13)
  - ATELECTASIS [None]
  - BLOOD GASES ABNORMAL [None]
  - BRAIN NATRIURETIC PEPTIDE INCREASED [None]
  - CARDIOMEGALY [None]
  - ELECTROCARDIOGRAM T WAVE INVERSION [None]
  - MENTAL DISORDER [None]
  - PLEURAL EFFUSION [None]
  - POST PROCEDURAL COMPLICATION [None]
  - PROCEDURAL PAIN [None]
  - PULMONARY CONGESTION [None]
  - STRESS [None]
  - STRESS CARDIOMYOPATHY [None]
  - VENTRICULAR HYPERKINESIA [None]
